FAERS Safety Report 6878136-5 (Version None)
Quarter: 2010Q2

REPORT INFORMATION
  Report Type: 
  Country: None (occurrence: None)
  Receive Date: 20100621
  Receipt Date: 20100224
  Transmission Date: 20101027
  Serious: No
  Sender: FDA-Public Use
  Company Number: 2010US000013

PATIENT
  Sex: Male

DRUGS (2)
  1. ENTEREG [Suspect]
     Indication: POSTOPERATIVE ILEUS
     Dosage: 12  MG
  2. OPIOIDS [Concomitant]

REACTIONS (1)
  - ABDOMINAL PAIN [None]
